FAERS Safety Report 18180712 (Version 9)
Quarter: 2020Q4

REPORT INFORMATION
  Report Type: Spontaneous
  Country: US (occurrence: US)
  Receive Date: 20200821
  Receipt Date: 20201126
  Transmission Date: 20210113
  Serious: Yes (Hospitalization)
  Sender: FDA-Public Use
  Company Number: US-UNITED THERAPEUTICS-UNT-2020-012448

PATIENT
  Sex: Female
  Weight: 86.17 kg

DRUGS (5)
  1. OPSUMIT [Concomitant]
     Active Substance: MACITENTAN
     Dosage: UNK
     Route: 048
     Dates: start: 2020
  2. OPSUMIT [Concomitant]
     Active Substance: MACITENTAN
     Indication: PULMONARY ARTERIAL HYPERTENSION
     Dosage: 10 MG, QD (10 MG, 1 IN 1 D)
     Route: 048
     Dates: start: 20200626
  3. REMODULIN [Suspect]
     Active Substance: TREPROSTINIL
     Indication: PULMONARY ARTERIAL HYPERTENSION
     Dosage: UNK, CONTINUING
     Route: 058
     Dates: start: 20200518
  4. REMODULIN [Suspect]
     Active Substance: TREPROSTINIL
     Dosage: 0.038 ?G/KG, CONTINUING (54720 NG/KG)
     Route: 058
     Dates: start: 2020, end: 202010
  5. OPSUMIT [Concomitant]
     Active Substance: MACITENTAN
     Dosage: UNK
     Route: 048
     Dates: start: 2020

REACTIONS (9)
  - Device dislocation [Unknown]
  - Infusion site pain [Recovered/Resolved]
  - Mobility decreased [Unknown]
  - Infusion site nerve damage [Unknown]
  - Infusion site scar [Unknown]
  - Oxygen saturation decreased [Unknown]
  - Infusion site haemorrhage [Unknown]
  - Infusion site exfoliation [Unknown]
  - Vomiting [Unknown]

NARRATIVE: CASE EVENT DATE: 2020
